FAERS Safety Report 7378151-1 (Version None)
Quarter: 2011Q1

REPORT INFORMATION
  Report Type: 
  Country: None (occurrence: None)
  Receive Date: 20110328
  Receipt Date: 20110317
  Transmission Date: 20110831
  Serious: Yes (Other)
  Sender: FDA-Public Use
  Company Number: TW-ASTRAZENECA-2011SE15285

PATIENT
  Age: 47 Year
  Sex: Male

DRUGS (2)
  1. GEFITINIB [Suspect]
     Route: 048
  2. GEFITINIB [Suspect]
     Route: 048

REACTIONS (1)
  - VASCULITIS NECROTISING [None]
